FAERS Safety Report 11004662 (Version 3)
Quarter: 2015Q3

REPORT INFORMATION
  Report Type: Spontaneous
  Country: US (occurrence: US)
  Receive Date: 20150409
  Receipt Date: 20150713
  Transmission Date: 20151125
  Serious: Yes (Hospitalization, Other)
  Sender: FDA-Public Use
  Company Number: US-MERCK-1504USA003809

PATIENT
  Sex: Male
  Weight: 190.48 kg

DRUGS (1)
  1. JANUVIA [Suspect]
     Active Substance: SITAGLIPTIN PHOSPHATE
     Indication: TYPE 2 DIABETES MELLITUS
     Dosage: 100 MG, DAILY
     Route: 048
     Dates: start: 20080511, end: 201211

REACTIONS (33)
  - Thyroidectomy [Unknown]
  - Gallbladder polyp [Unknown]
  - Chronic obstructive pulmonary disease [Not Recovered/Not Resolved]
  - Small intestine adenocarcinoma [Unknown]
  - Asthma [Unknown]
  - Intestinal cyst [Unknown]
  - Haematoma [Unknown]
  - Foreign body [Unknown]
  - Cancer surgery [Unknown]
  - Vision blurred [Unknown]
  - Pulmonary hypertension [Unknown]
  - Anal fistula [Unknown]
  - Staphylococcal infection [Unknown]
  - Arthralgia [Unknown]
  - Pancreatic neuroendocrine tumour [Unknown]
  - Medullary thyroid cancer [Unknown]
  - Chest pain [Unknown]
  - Bacteraemia [Unknown]
  - Cardiac failure congestive [Unknown]
  - Lymphadenopathy [Unknown]
  - Sleep apnoea syndrome [Unknown]
  - Anal abscess [Unknown]
  - Back pain [Unknown]
  - Blood triglycerides increased [Unknown]
  - Transient ischaemic attack [Unknown]
  - Coronary artery disease [Unknown]
  - Cardiac pacemaker insertion [Unknown]
  - Oedema [Unknown]
  - Hiatus hernia [Unknown]
  - Cardiac arrest [Recovered/Resolved]
  - Atrial fibrillation [Unknown]
  - Cellulitis [Unknown]
  - Hypersensitivity [Unknown]

NARRATIVE: CASE EVENT DATE: 20080918
